FAERS Safety Report 20325898 (Version 5)
Quarter: 2022Q1

REPORT INFORMATION
  Report Type: Spontaneous
  Country: GB (occurrence: GB)
  Receive Date: 20220112
  Receipt Date: 20220322
  Transmission Date: 20220423
  Serious: Yes (Other)
  Sender: FDA-Public Use
  Company Number: GB-CELLTRION INC.-2021GB016396

PATIENT

DRUGS (4)
  1. INFLIXIMAB [Suspect]
     Active Substance: INFLIXIMAB
     Indication: Product used for unknown indication
     Dosage: PFP (EOW)
     Route: 058
  2. INFLIXIMAB [Suspect]
     Active Substance: INFLIXIMAB
     Dosage: PFP
     Route: 058
  3. INFLIXIMAB [Suspect]
     Active Substance: INFLIXIMAB
     Dosage: PF 2WKLY
     Route: 058
  4. INFLIXIMAB [Suspect]
     Active Substance: INFLIXIMAB
     Indication: Product used for unknown indication
     Dosage: UNK
     Route: 042

REACTIONS (4)
  - Crohn^s disease [Unknown]
  - Elderly [Unknown]
  - Emotional distress [Unknown]
  - Treatment delayed [Unknown]
